FAERS Safety Report 9300933 (Version 1)
Quarter: 2013Q2

REPORT INFORMATION
  Report Type: Spontaneous
  Country: MX (occurrence: MX)
  Receive Date: 20130521
  Receipt Date: 20130521
  Transmission Date: 20140414
  Serious: Yes (Other)
  Sender: FDA-Public Use
  Company Number: MX-PFIZER INC-2013155348

PATIENT
  Age: 45 Year
  Sex: Female
  Weight: 58 kg

DRUGS (5)
  1. PRISTIQ [Suspect]
     Indication: SLEEP DISORDER
     Dosage: 50 MG, AT BEDTIME
     Route: 048
     Dates: start: 2012, end: 20130513
  2. NUMENCIAL [Suspect]
     Indication: SLEEP DISORDER
     Dosage: UNK
     Route: 048
     Dates: end: 20130517
  3. POSTURE D [Concomitant]
     Indication: MINERAL SUPPLEMENTATION
     Dosage: 500 MG, 1X/DAY
  4. METFORMIN [Concomitant]
     Indication: BLOOD GLUCOSE ABNORMAL
     Dosage: 500 MG, 2X/DAY
     Route: 048
     Dates: start: 2010
  5. CRESTOR [Concomitant]
     Indication: BLOOD CHOLESTEROL ABNORMAL
     Dosage: 10 MG, TWICE A WEEK
     Dates: start: 2010

REACTIONS (5)
  - Drug dependence [Unknown]
  - Nausea [Unknown]
  - Dry mouth [Unknown]
  - Diarrhoea [Unknown]
  - Insomnia [Unknown]
